FAERS Safety Report 16228944 (Version 3)
Quarter: 2019Q3

REPORT INFORMATION
  Report Type: Spontaneous
  Country: US (occurrence: US)
  Receive Date: 20190423
  Receipt Date: 20190912
  Transmission Date: 20191004
  Serious: Yes (Other)
  Sender: FDA-Public Use
  Company Number: US-PFIZER INC-2019167136

PATIENT
  Age: 46 Year
  Sex: Male
  Weight: 63.5 kg

DRUGS (3)
  1. RAPAMUNE [Suspect]
     Active Substance: SIROLIMUS
     Indication: LIVER TRANSPLANT REJECTION
  2. RAPAMUNE [Suspect]
     Active Substance: SIROLIMUS
     Indication: LIVER TRANSPLANT
     Dosage: 4 MG, 1X/DAY
     Route: 048
     Dates: start: 2013
  3. RAPAMUNE [Suspect]
     Active Substance: SIROLIMUS
     Indication: ORGAN TRANSPLANT
     Dosage: 2 MG, DAILY
     Route: 048

REACTIONS (4)
  - Neoplasm malignant [Unknown]
  - Prescribed overdose [Unknown]
  - Product use in unapproved indication [Unknown]
  - Off label use [Unknown]

NARRATIVE: CASE EVENT DATE: 2013
